FAERS Safety Report 6578268-5 (Version None)
Quarter: 2010Q1

REPORT INFORMATION
  Report Type: 
  Country: None (occurrence: None)
  Receive Date: 20100211
  Receipt Date: 20100203
  Transmission Date: 20100710
  Serious: Yes (Death, Life-Threatening)
  Sender: FDA-Public Use
  Company Number: B0579941A

PATIENT
  Sex: Female

DRUGS (1)
  1. HYCAMTIN [Suspect]
     Indication: CERVIX CARCINOMA
     Dosage: 4.5MG WEEKLY
     Route: 042
     Dates: start: 20090122, end: 20090602

REACTIONS (5)
  - COMA [None]
  - CONFUSIONAL STATE [None]
  - EPILEPSY [None]
  - GRAND MAL CONVULSION [None]
  - TREMOR [None]
